FAERS Safety Report 4925407-5 (Version None)
Quarter: 2006Q1

REPORT INFORMATION
  Report Type: 
  Country: None (occurrence: None)
  Receive Date: 20060228
  Receipt Date: 20050215
  Transmission Date: 20060701
  Serious: No
  Sender: FDA-Public Use
  Company Number: US-GLAXOSMITHKLINE-A0545699A

PATIENT
  Sex: Female

DRUGS (5)
  1. LAMICTAL [Suspect]
     Dosage: 100MG PER DAY
     Route: 048
  2. KLONOPIN [Concomitant]
  3. PROZAC [Concomitant]
  4. SEROQUEL [Concomitant]
  5. UNKNOWN MEDICATION [Concomitant]
     Route: 065

REACTIONS (1)
  - WEIGHT INCREASED [None]
